FAERS Safety Report 7333848-4 (Version None)
Quarter: 2011Q1

REPORT INFORMATION
  Report Type: 
  Country: None (occurrence: None)
  Receive Date: 20110307
  Receipt Date: 20110301
  Transmission Date: 20110831
  Serious: Yes (Other)
  Sender: FDA-Public Use
  Company Number: US-ASTRAZENECA-2011SE11156

PATIENT
  Age: 48 Year
  Sex: Male
  Weight: 127 kg

DRUGS (24)
  1. PRILOSEC [Concomitant]
     Dates: start: 20001227
  2. LASIX [Concomitant]
     Dates: start: 20040101
  3. RESTORIL [Concomitant]
     Dates: start: 20040101
  4. ADVAIR DISKUS 100/50 [Concomitant]
     Dates: start: 20040101
  5. COMBIVENT [Concomitant]
     Dates: start: 20040101
  6. AMOXIL [Concomitant]
     Route: 048
  7. PLAVIX [Concomitant]
     Dates: start: 20040101
  8. TRIAMTERENE AND HYDROCHLOROTHIAZIDE [Concomitant]
     Dates: start: 20001206
  9. HYDROCODONE BITARTRATE + ACETAMINOPHEN [Concomitant]
     Dates: start: 20001222
  10. PROMETHAZINE VC PLAIN [Concomitant]
     Dates: start: 20001227
  11. SEROQUEL [Suspect]
     Route: 048
     Dates: start: 20001222
  12. ZOCOR [Concomitant]
     Dates: start: 20001207
  13. METOPROLOL TART [Concomitant]
     Dosage: 50
     Dates: start: 20010110
  14. ROXICODONE [Concomitant]
     Dates: start: 20010123
  15. BENICAR [Concomitant]
     Dates: start: 20040101
  16. CEPHALEXIN [Concomitant]
     Dates: start: 20010224
  17. HYDROCODONE BITARTRATE [Concomitant]
     Dates: start: 20040101
  18. ISOSORBIDE MN [Concomitant]
     Dates: start: 20001206
  19. DEMADEX [Concomitant]
     Dates: start: 20001207
  20. AMBIEN [Concomitant]
     Dates: start: 20010110
  21. PREVACID [Concomitant]
     Dates: start: 20040101
  22. PRAVACHOL [Concomitant]
     Dates: start: 20040101
  23. VALIUM [Concomitant]
     Dates: start: 20040101
  24. PALMETTO [Concomitant]
     Dates: start: 20040101

REACTIONS (25)
  - ERECTILE DYSFUNCTION [None]
  - MYOCARDIAL INFARCTION [None]
  - SPINAL OSTEOARTHRITIS [None]
  - LUNG DISORDER [None]
  - GASTRIC ULCER [None]
  - ASTHMA [None]
  - ANXIETY DISORDER [None]
  - CONVULSION [None]
  - MENISCUS LESION [None]
  - RHEUMATIC FEVER [None]
  - SINUSITIS [None]
  - CHRONIC OBSTRUCTIVE PULMONARY DISEASE [None]
  - MIGRAINE [None]
  - NERVOUSNESS [None]
  - GLAUCOMA [None]
  - TYPE 2 DIABETES MELLITUS [None]
  - DEPRESSION [None]
  - HYPERTENSION [None]
  - PNEUMONIA [None]
  - SLEEP APNOEA SYNDROME [None]
  - CORONARY ARTERY DISEASE [None]
  - ARTHRALGIA [None]
  - AMNESIA [None]
  - GASTROOESOPHAGEAL REFLUX DISEASE [None]
  - BLOOD CHOLESTEROL INCREASED [None]
